FAERS Safety Report 9201274 (Version 5)
Quarter: 2013Q4

REPORT INFORMATION
  Report Type: Spontaneous
  Country: IE (occurrence: IE)
  Receive Date: 20130401
  Receipt Date: 20131028
  Transmission Date: 20140711
  Serious: Yes (Hospitalization, Other)
  Sender: FDA-Public Use
  Company Number: PHFR2013IE001598

PATIENT
  Age: 60 Year
  Sex: Male

DRUGS (5)
  1. CLOZARIL [Suspect]
     Indication: SCHIZOPHRENIA
     Dosage: 425 MG, DAILY
     Route: 048
     Dates: start: 20101229, end: 20130304
  2. LITHIUM [Concomitant]
     Indication: AFFECTIVE DISORDER
     Dosage: 800 MG, DAILY
     Route: 048
  3. MIRTAZAPINE [Concomitant]
     Indication: DEPRESSION
     Dosage: 450 MG, DAILY
     Route: 048
     Dates: start: 201212
  4. EPILIM [Concomitant]
     Indication: CONVULSION
     Dosage: 1000 MG, DAILY
     Route: 048
     Dates: start: 201301
  5. CYMBALTA [Concomitant]
     Indication: DEPRESSION
     Dosage: 120 MG, UNK
     Route: 048
     Dates: start: 201301

REACTIONS (7)
  - Confusional state [Recovered/Resolved]
  - Cognitive disorder [Recovered/Resolved with Sequelae]
  - Memory impairment [Recovered/Resolved with Sequelae]
  - Cerebrovascular accident [Recovered/Resolved with Sequelae]
  - Psychotic disorder [Recovered/Resolved with Sequelae]
  - Convulsion [Recovered/Resolved with Sequelae]
  - No therapeutic response [Recovered/Resolved with Sequelae]
